FAERS Safety Report 8274338-4 (Version None)
Quarter: 2012Q2

REPORT INFORMATION
  Report Type: 
  Country: None (occurrence: None)
  Receive Date: 20120409
  Receipt Date: 20120324
  Transmission Date: 20120825
  Serious: Yes (Hospitalization)
  Sender: FDA-Public Use
  Company Number: 2012AP000846

PATIENT
  Age: 77 Year
  Sex: Female

DRUGS (4)
  1. FUROSEMIDE [Suspect]
  2. AMITRIPTYLINE HCL [Suspect]
  3. QUETIAPINE FUMARATE [Suspect]
  4. CITALOPRAM HYDROBROMIDE [Suspect]

REACTIONS (5)
  - TORSADE DE POINTES [None]
  - HYPOMAGNESAEMIA [None]
  - DRUG INTERACTION [None]
  - HYPOKALAEMIA [None]
  - ELECTROCARDIOGRAM QT PROLONGED [None]
